FAERS Safety Report 4824653-9 (Version None)
Quarter: 2005Q4

REPORT INFORMATION
  Report Type: 
  Country: None (occurrence: None)
  Receive Date: 20051108
  Receipt Date: 20051024
  Transmission Date: 20060501
  Serious: Yes (Other)
  Sender: FDA-Public Use
  Company Number: GBS051018867

PATIENT
  Age: 39 Year
  Sex: Female

DRUGS (2)
  1. CYMBALTA [Suspect]
     Indication: POSTPARTUM DEPRESSION
     Dosage: 60 MG
     Dates: start: 20050101, end: 20051014
  2. RISPERIDONE [Concomitant]

REACTIONS (3)
  - CONVULSION [None]
  - HEADACHE [None]
  - LOSS OF CONTROL OF LEGS [None]
